FAERS Safety Report 21923195 (Version 2)
Quarter: 2023Q1

REPORT INFORMATION
  Report Type: Spontaneous
  Country: JP (occurrence: JP)
  Receive Date: 20230129
  Receipt Date: 20230301
  Transmission Date: 20230417
  Serious: Yes (Hospitalization)
  Sender: FDA-Public Use
  Company Number: JP-CHUGAI-2022031145

PATIENT
  Age: 84 Year
  Sex: Male
  Weight: 50.3 kg

DRUGS (13)
  1. TECENTRIQ [Suspect]
     Active Substance: ATEZOLIZUMAB
     Indication: Hepatocellular carcinoma
     Route: 041
     Dates: start: 20220628
  2. AVASTIN [Suspect]
     Active Substance: BEVACIZUMAB
     Indication: Hepatocellular carcinoma
     Route: 041
     Dates: start: 20220628, end: 20220920
  3. MONTELUKAST [Concomitant]
     Active Substance: MONTELUKAST SODIUM
     Dosage: UNK
     Route: 065
  4. ZOLPIDEM TARTRATE [Concomitant]
     Active Substance: ZOLPIDEM TARTRATE
     Dosage: UNK
     Route: 065
  5. BUDEFORU [Concomitant]
     Dosage: UNK
     Route: 055
  6. AMLODIPINE BESYLATE [Concomitant]
     Active Substance: AMLODIPINE BESYLATE
     Dosage: UNK
     Route: 065
  7. IPRAGLIFLOZIN L-PROLINE [Concomitant]
     Active Substance: IPRAGLIFLOZIN L-PROLINE
     Dosage: UNK
     Route: 065
  8. ATORVASTATIN [Concomitant]
     Active Substance: ATORVASTATIN
     Dosage: UNK
     Route: 065
  9. TAMSULOSIN HYDROCHLORIDE [Concomitant]
     Active Substance: TAMSULOSIN HYDROCHLORIDE
     Dosage: UNK
     Route: 065
  10. LINAGLIPTIN [Concomitant]
     Active Substance: LINAGLIPTIN
     Dosage: UNK
     Route: 065
  11. VONOPRAZAN FUMARATE [Concomitant]
     Active Substance: VONOPRAZAN FUMARATE
     Dosage: UNK
     Route: 065
  12. ENTRESTO [Concomitant]
     Active Substance: SACUBITRIL\VALSARTAN
     Dosage: UNK
     Route: 065
  13. AMINO ACIDS, SOURCE UNSPECIFIED [Concomitant]
     Active Substance: AMINO ACIDS, SOURCE UNSPECIFIED
     Dosage: UNK
     Route: 065
     Dates: start: 20220629

REACTIONS (2)
  - Neutrophil count decreased [Recovered/Resolved]
  - Glossitis [Recovering/Resolving]

NARRATIVE: CASE EVENT DATE: 20220630
